FAERS Safety Report 6764975-8 (Version None)
Quarter: 2010Q2

REPORT INFORMATION
  Report Type: 
  Country: None (occurrence: None)
  Receive Date: 20100610
  Receipt Date: 20100604
  Transmission Date: 20101027
  Serious: Yes (Death, Life-Threatening, Hospitalization)
  Sender: FDA-Public Use
  Company Number: PHHY2010JP34688

PATIENT
  Age: 62 Year
  Sex: Female

DRUGS (3)
  1. GLEEVEC [Suspect]
     Indication: CHRONIC MYELOID LEUKAEMIA
     Dosage: 400 MG DAILY
     Route: 048
  2. URALYT [Concomitant]
     Route: 048
  3. TAKEPRON [Concomitant]

REACTIONS (3)
  - CARDIAC TAMPONADE [None]
  - INFECTION [None]
  - MYOCARDITIS [None]
